FAERS Safety Report 5738618-6 (Version None)
Quarter: 2008Q2

REPORT INFORMATION
  Report Type: 
  Country: None (occurrence: None)
  Receive Date: 20080515
  Receipt Date: 20080506
  Transmission Date: 20081010
  Serious: Yes (Hospitalization)
  Sender: FDA-Public Use
  Company Number: PHHO2008US05777

PATIENT
  Age: 57 Year
  Sex: Female

DRUGS (19)
  1. CARBATROL [Suspect]
  2. KLONOPIN [Suspect]
  3. LAMICTAL [Suspect]
  4. ZOLOFT [Suspect]
  5. ZANTAC [Suspect]
  6. COLACE [Suspect]
  7. MELATONIN [Suspect]
  8. AMITRIPTYLINE HCL [Concomitant]
  9. IMITREX [Concomitant]
  10. TETRACYCLINE [Concomitant]
  11. PROPRANOLOL [Concomitant]
  12. TYLENOL [Concomitant]
  13. GLUCOSAMINE W/CHONDROITIN [Concomitant]
  14. MULTI-VITAMIN [Concomitant]
  15. VITAMIN E [Concomitant]
  16. PEPCID [Concomitant]
  17. ADVIL [Concomitant]
  18. MELATONIN [Concomitant]
  19. TEGRETOL [Suspect]

REACTIONS (5)
  - ACCIDENTAL EXPOSURE [None]
  - CONFUSIONAL STATE [None]
  - INCONTINENCE [None]
  - LETHARGY [None]
  - UNRESPONSIVE TO STIMULI [None]
